FAERS Safety Report 5142337-7 (Version None)
Quarter: 2006Q4

REPORT INFORMATION
  Report Type: 
  Country: None (occurrence: None)
  Receive Date: 20061102
  Receipt Date: 20060831
  Transmission Date: 20070319
  Serious: Yes (Congenital Anomaly, Other)
  Sender: FDA-Public Use
  Company Number: US-GLAXOSMITHKLINE-A0618832B

PATIENT

DRUGS (3)
  1. ZOFRAN [Suspect]
     Dates: start: 20051101, end: 20060620
  2. PRENATAL VITAMINS [Concomitant]
  3. TYLENOL [Concomitant]

REACTIONS (2)
  - CONGENITAL TRICUSPID VALVE ATRESIA [None]
  - DRUG EXPOSURE DURING PREGNANCY [None]
